FAERS Safety Report 8726999 (Version 2)
Quarter: 2012Q4

REPORT INFORMATION
  Report Type: 
  Country: US (occurrence: US)
  Receive Date: 20120816
  Receipt Date: 20121019
  Transmission Date: 20130627
  Serious: No
  Sender: FDA-Public Use
  Company Number: US-GLAXOSMITHKLINE-A0989570A

PATIENT
  Age: 22 Year
  Sex: Female

DRUGS (2)
  1. SORIATANE [Suspect]
     Indication: PRODUCT USED FOR UNKNOWN INDICATION
     Route: 048
     Dates: end: 200902
  2. BIRTH CONTROL PILLS [Concomitant]

REACTIONS (1)
  - Maternal exposure before pregnancy [Unknown]
